FAERS Safety Report 5798694-1 (Version None)
Quarter: 2008Q3

REPORT INFORMATION
  Report Type: 
  Country: None (occurrence: None)
  Receive Date: 20080702
  Receipt Date: 20080624
  Transmission Date: 20090109
  Serious: Yes (Other)
  Sender: FDA-Public Use
  Company Number: AT-ABBOTT-08P-009-0459476-00

PATIENT
  Age: 42 Year
  Sex: Female

DRUGS (1)
  1. ADALIMUMAB [Suspect]
     Indication: RHEUMATOID ARTHRITIS

REACTIONS (1)
  - PYODERMA GANGRENOSUM [None]
